FAERS Safety Report 5305639-7 (Version None)
Quarter: 2007Q2

REPORT INFORMATION
  Report Type: 
  Country: None (occurrence: None)
  Receive Date: 20070424
  Receipt Date: 20070413
  Transmission Date: 20071010
  Serious: Yes (Other)
  Sender: FDA-Public Use
  Company Number: DE-PFIZER INC-2006113274

PATIENT
  Sex: Male

DRUGS (3)
  1. DIFLUCAN [Suspect]
     Indication: KERATITIS FUNGAL
     Route: 061
  2. FLOXAL EYEDROPS [Concomitant]
     Route: 061
  3. ALL OTHER THERAPEUTIC PRODUCTS [Concomitant]
     Route: 061
     Dates: end: 20070101

REACTIONS (5)
  - CORNEAL OPACITY [None]
  - DRUG INEFFECTIVE [None]
  - EYE SWELLING [None]
  - OCULAR HYPERAEMIA [None]
  - ULCERATIVE KERATITIS [None]
